FAERS Safety Report 24416363 (Version 4)
Quarter: 2024Q4

REPORT INFORMATION
  Report Type: Spontaneous
  Country: CA (occurrence: CA)
  Receive Date: 20241009
  Receipt Date: 20241204
  Transmission Date: 20250115
  Serious: Yes (Other)
  Sender: PFIZER
  Company Number: CA-PFIZER INC-202400055060

PATIENT
  Age: 48 Year
  Sex: Male

DRUGS (2)
  1. RUXIENCE [Suspect]
     Active Substance: RITUXIMAB-PVVR
     Indication: Neuromyelitis optica spectrum disorder
     Dosage: 1000 MG, DAY 1
     Route: 042
     Dates: start: 20240502
  2. RUXIENCE [Suspect]
     Active Substance: RITUXIMAB-PVVR
     Indication: Blindness
     Dosage: 1000 MG,  DAY 15
     Route: 042
     Dates: start: 20240515

REACTIONS (2)
  - Osteonecrosis [Unknown]
  - Off label use [Unknown]
